FAERS Safety Report 18382491 (Version 1)
Quarter: 2020Q4

REPORT INFORMATION
  Report Type: Spontaneous
  Country: US (occurrence: US)
  Receive Date: 20201014
  Receipt Date: 20201014
  Transmission Date: 20210114
  Serious: Yes (Hospitalization)
  Sender: FDA-Public Use
  Company Number: None

PATIENT
  Age: 49 Year
  Sex: Female
  Weight: 52.2 kg

DRUGS (5)
  1. FLUCONAZOLE. [Suspect]
     Active Substance: FLUCONAZOLE
     Indication: FUNGAEMIA
     Route: 048
     Dates: start: 20201009
  2. FLUCONAZOLE. [Concomitant]
     Active Substance: FLUCONAZOLE
     Dates: start: 20201009
  3. COLCHICINE. [Suspect]
     Active Substance: COLCHICINE
     Indication: PERICARDITIS
     Route: 048
     Dates: start: 20201009, end: 20201014
  4. COLCHICINE. [Concomitant]
     Active Substance: COLCHICINE
     Dates: start: 20201009
  5. CIPROFLOXACIN. [Suspect]
     Active Substance: CIPROFLOXACIN
     Dates: start: 20201009

REACTIONS (5)
  - Nausea [None]
  - Vomiting [None]
  - Weight decreased [None]
  - Abdominal pain [None]
  - Gastrointestinal anastomotic stenosis [None]

NARRATIVE: CASE EVENT DATE: 20201013
